FAERS Safety Report 15084302 (Version 1)
Quarter: 2018Q2

REPORT INFORMATION
  Report Type: Report from Study
  Country: US (occurrence: US)
  Receive Date: 20180628
  Receipt Date: 20180628
  Transmission Date: 20180711
  Serious: Yes (Hospitalization, Other)
  Sender: FDA-Public Use
  Company Number: US-BAYER-2018-050606

PATIENT
  Age: 80 Year
  Sex: Female

DRUGS (3)
  1. STIVARGA [Suspect]
     Active Substance: REGORAFENIB
     Indication: COLORECTAL CANCER
     Dosage: 80 MG, QD
     Route: 048
     Dates: start: 20180308, end: 2018
  2. STIVARGA [Suspect]
     Active Substance: REGORAFENIB
     Indication: COLORECTAL CANCER
     Dosage: 160 MG, QD
     Route: 048
     Dates: start: 20180308, end: 20180308
  3. STIVARGA [Suspect]
     Active Substance: REGORAFENIB
     Indication: COLORECTAL CANCER
     Dosage: 40 MG, QD
     Route: 048
     Dates: start: 20180504, end: 201805

REACTIONS (18)
  - Nausea [None]
  - Skin discolouration [None]
  - Asthenia [Not Recovered/Not Resolved]
  - Dry mouth [None]
  - Fatigue [Not Recovered/Not Resolved]
  - Abdominal pain [Recovering/Resolving]
  - Dry skin [None]
  - Dehydration [None]
  - Dyspnoea exertional [Not Recovered/Not Resolved]
  - Dysphonia [None]
  - Dizziness [None]
  - Decreased appetite [Recovering/Resolving]
  - Constipation [None]
  - Diarrhoea [None]
  - Constipation [None]
  - Diarrhoea [None]
  - Headache [Recovered/Resolved]
  - Weight decreased [Not Recovered/Not Resolved]

NARRATIVE: CASE EVENT DATE: 201803
